FAERS Safety Report 16715136 (Version 1)
Quarter: 2019Q3

REPORT INFORMATION
  Report Type: Spontaneous
  Country: GB (occurrence: GB)
  Receive Date: 20190819
  Receipt Date: 20190819
  Transmission Date: 20191005
  Serious: Yes (Other)
  Sender: FDA-Public Use
  Company Number: GB-PFIZER INC-2019350432

PATIENT
  Age: 64 Year
  Sex: Male
  Weight: 67 kg

DRUGS (12)
  1. TIOTROPIUM [Concomitant]
     Active Substance: TIOTROPIUM
     Dosage: AT THE SAME TIME OF DAY
     Route: 055
     Dates: start: 20190415
  2. METOSYN [Concomitant]
     Dosage: APPLY 1-2 TIMES DAILY FOR HANDS
     Route: 065
     Dates: start: 20180723
  3. VENTOLINE [SALBUTAMOL] [Concomitant]
     Active Substance: ALBUTEROL SULFATE
     Dosage: PUFFS
     Route: 065
     Dates: start: 20180723
  4. FLUTICASONE PROPIONATE. [Concomitant]
     Active Substance: FLUTICASONE PROPIONATE
     Dosage: PUFFS
     Route: 065
     Dates: start: 20180723
  5. CARBOCISTEINE [Concomitant]
     Active Substance: CARBOCYSTEINE
     Dosage: 3 DF, QD
     Dates: start: 20180723
  6. MEBEVERINE HYDROCHLORIDE [Concomitant]
     Active Substance: MEBEVERINE HYDROCHLORIDE
     Dosage: 2 DF, QD
     Dates: start: 20180723
  7. MONTELUKAST [Concomitant]
     Active Substance: MONTELUKAST SODIUM
     Dosage: 1 DF, QD
     Dates: start: 20180723
  8. PREDNISOLONE. [Concomitant]
     Active Substance: PREDNISOLONE
     Dosage: SIX TO BE TAKEN DAILY IF EXACERBATION OF ATOPIC...
     Dates: start: 20180723
  9. CLARITHROMYCIN. [Concomitant]
     Active Substance: CLARITHROMYCIN
     Dosage: FOR EXACERBATIONS
     Dates: start: 20180723
  10. RAMIPRIL. [Suspect]
     Active Substance: RAMIPRIL
     Dosage: 2.5 MG, QD
     Route: 065
     Dates: start: 20190417, end: 20190722
  11. CANDESARTAN. [Concomitant]
     Active Substance: CANDESARTAN
     Dosage: 1 DF, QD
     Dates: start: 20190722
  12. TAMSULOSIN HYDROCHLORIDE. [Concomitant]
     Active Substance: TAMSULOSIN HYDROCHLORIDE
     Dosage: 1 DF, QD
     Dates: start: 20190528

REACTIONS (2)
  - Asthma [Recovering/Resolving]
  - Bronchospasm [Recovering/Resolving]

NARRATIVE: CASE EVENT DATE: 20190708
